FAERS Safety Report 19279157 (Version 1)
Quarter: 2021Q2

REPORT INFORMATION
  Report Type: Spontaneous
  Country: US (occurrence: US)
  Receive Date: 20210520
  Receipt Date: 20210520
  Transmission Date: 20210717
  Serious: Yes (Hospitalization)
  Sender: FDA-Public Use
  Company Number: US-ROCHE-2832183

PATIENT
  Sex: Female

DRUGS (8)
  1. ALBUTEROL HFA [Concomitant]
     Active Substance: ALBUTEROL SULFATE
     Dates: start: 20210423
  2. XOLAIR [Suspect]
     Active Substance: OMALIZUMAB
  3. COVID?19 VACCINE NOS. [Concomitant]
     Active Substance: COVID-19 VACCINE NOS
  4. XOLAIR [Suspect]
     Active Substance: OMALIZUMAB
  5. PREGABALIN. [Concomitant]
     Active Substance: PREGABALIN
     Dates: start: 20210423
  6. CLARITIN [Concomitant]
     Active Substance: LORATADINE
  7. GABAPENTIN. [Concomitant]
     Active Substance: GABAPENTIN
  8. XOLAIR [Suspect]
     Active Substance: OMALIZUMAB
     Indication: ANAPHYLACTIC SHOCK
     Dosage: STRENGTH: 150 MG/ML
     Route: 058
     Dates: start: 20210511

REACTIONS (6)
  - Pharyngeal swelling [Unknown]
  - Swollen tongue [Unknown]
  - Paraesthesia oral [Unknown]
  - Off label use [Unknown]
  - Infusion related reaction [Unknown]
  - Lip swelling [Unknown]
